FAERS Safety Report 11678137 (Version 2)
Quarter: 2015Q4

REPORT INFORMATION
  Report Type: Spontaneous
  Country: US (occurrence: US)
  Receive Date: 20151028
  Receipt Date: 20151112
  Transmission Date: 20160304
  Serious: No
  Sender: FDA-Public Use
  Company Number: US-SUNOVION-2015SUN000689

PATIENT
  Sex: Female

DRUGS (1)
  1. LATUDA [Suspect]
     Active Substance: LURASIDONE HYDROCHLORIDE
     Indication: BIPOLAR DISORDER
     Dosage: 20 MG, QD
     Route: 048

REACTIONS (3)
  - Panic attack [Recovered/Resolved]
  - Chest discomfort [Recovered/Resolved]
  - Dyspnoea [Recovered/Resolved]
